FAERS Safety Report 21850575 (Version 1)
Quarter: 2023Q1

REPORT INFORMATION
  Report Type: Spontaneous
  Country: US (occurrence: US)
  Receive Date: 20230111
  Receipt Date: 20230111
  Transmission Date: 20230418
  Serious: No
  Sender: FDA-Public Use
  Company Number: US-KARYOPHARM-2022KPT001592

PATIENT

DRUGS (12)
  1. XPOVIO [Suspect]
     Active Substance: SELINEXOR
     Indication: Plasma cell myeloma
     Dosage: 100 MG, WEEKLY
     Route: 048
     Dates: start: 20221129
  2. ACYCLOVIR ABBOTT VIAL [Concomitant]
  3. AMLODIPINE [Concomitant]
     Active Substance: AMLODIPINE BESYLATE
  4. ATORVASTATIN [Concomitant]
     Active Substance: ATORVASTATIN
  5. DARZALEX [Concomitant]
     Active Substance: DARATUMUMAB
  6. DEXAMETHASONE [Concomitant]
     Active Substance: DEXAMETHASONE
  7. ELIQUIS [Concomitant]
     Active Substance: APIXABAN
  8. FAMOTIDINE [Concomitant]
     Active Substance: FAMOTIDINE
  9. LATANOPROST [Concomitant]
     Active Substance: LATANOPROST
  10. LOSARTAN [Concomitant]
     Active Substance: LOSARTAN
  11. SERTRALINE [Concomitant]
     Active Substance: SERTRALINE HYDROCHLORIDE
  12. SOTALOL [Concomitant]
     Active Substance: SOTALOL

REACTIONS (4)
  - Blood glucose increased [Unknown]
  - Gait disturbance [Unknown]
  - SARS-CoV-2 test positive [Unknown]
  - Diarrhoea [Unknown]

NARRATIVE: CASE EVENT DATE: 20220101
